FAERS Safety Report 9304872 (Version 1)
Quarter: 2013Q2

REPORT INFORMATION
  Report Type: Spontaneous
  Country: US (occurrence: None)
  Receive Date: 20130521
  Receipt Date: 20130521
  Transmission Date: 20140414
  Serious: Yes (Disabling)
  Sender: FDA-Public Use
  Company Number: None

PATIENT
  Age: 47 Year
  Sex: Female
  Weight: 77.11 kg

DRUGS (9)
  1. PARAGARD IUD SUPPOSED TO BE HORMONE FREE PARAGARD [Suspect]
  2. KETOCONAZOLE SHAMPOO 2% [Concomitant]
  3. TRETINOIN CREAM 0.05% [Concomitant]
  4. OMEGA 3-6-9 [Concomitant]
  5. GLUCOMSAMINE/CHONDROITIN [Concomitant]
  6. MAGNESIUM [Concomitant]
  7. COQ10 [Concomitant]
  8. D3 [Concomitant]
  9. MULTIVITAMIN [Concomitant]

REACTIONS (6)
  - Vulvovaginal pain [None]
  - Proctalgia [None]
  - Perineal pain [None]
  - Burning sensation [None]
  - Pain [None]
  - Sensation of heaviness [None]
